FAERS Safety Report 6967440-8 (Version None)
Quarter: 2010Q3

REPORT INFORMATION
  Report Type: 
  Country: None (occurrence: None)
  Receive Date: 20100907
  Receipt Date: 20100823
  Transmission Date: 20110219
  Serious: Yes (Other)
  Sender: FDA-Public Use
  Company Number: PHHY2010JP41364

PATIENT
  Age: 50 Year
  Sex: Male

DRUGS (2)
  1. RASILEZ [Suspect]
     Indication: HYPERTENSION
     Dosage: 150 MG
     Route: 048
     Dates: start: 20100607, end: 20100619
  2. RASILEZ [Suspect]
     Dosage: 150 MG
     Route: 048
     Dates: start: 20100620, end: 20100621

REACTIONS (4)
  - BLOOD CREATININE INCREASED [None]
  - BLOOD UREA INCREASED [None]
  - DISCOMFORT [None]
  - HYPOTENSION [None]
